FAERS Safety Report 11199108 (Version 1)
Quarter: 2015Q2

REPORT INFORMATION
  Report Type: Spontaneous
  Country: US (occurrence: US)
  Receive Date: 20150618
  Receipt Date: 20150618
  Transmission Date: 20150821
  Serious: No
  Sender: FDA-Public Use
  Company Number: US-TEVA-492853USA

PATIENT
  Sex: Female

DRUGS (1)
  1. LAMOTRIGINE. [Suspect]
     Active Substance: LAMOTRIGINE
     Indication: EPILEPSY
     Dosage: 400 MILLIGRAM DAILY; HS
     Dates: start: 201312

REACTIONS (8)
  - Parosmia [Unknown]
  - Urine output increased [Unknown]
  - Hot flush [Unknown]
  - Hyperhidrosis [Unknown]
  - Dizziness [Unknown]
  - Constipation [Unknown]
  - Balance disorder [Unknown]
  - Somnolence [Unknown]
